FAERS Safety Report 9071860 (Version 1)
Quarter: 2013Q1

REPORT INFORMATION
  Report Type: Spontaneous
  Country: MX (occurrence: MX)
  Receive Date: 20130129
  Receipt Date: 20130129
  Transmission Date: 20140127
  Serious: Yes (Other)
  Sender: FDA-Public Use
  Company Number: MX-ROCHE-1184709

PATIENT
  Age: 49 Year
  Sex: Female
  Weight: 48 kg

DRUGS (2)
  1. AVASTIN [Suspect]
     Indication: RENAL CANCER
     Route: 065
  2. INTERFERON ALFA-2B [Suspect]
     Indication: RENAL CANCER
     Route: 065

REACTIONS (1)
  - Arthralgia [Unknown]
